FAERS Safety Report 20355304 (Version 1)
Quarter: 2022Q1

REPORT INFORMATION
  Report Type: Spontaneous
  Country: US (occurrence: None)
  Receive Date: 20220119
  Receipt Date: 20220119
  Transmission Date: 20220423
  Serious: No
  Sender: FDA-Public Use
  Company Number: None

PATIENT
  Age: 51 Year
  Sex: Female

DRUGS (2)
  1. BAMLANIVIMAB [Suspect]
     Active Substance: BAMLANIVIMAB
     Indication: Coronavirus test positive
     Dosage: FREQUENCY : ONCE;?
     Route: 041
     Dates: start: 20220117, end: 20220117
  2. ETESEVIMAB [Suspect]
     Active Substance: ETESEVIMAB
     Indication: Coronavirus test positive
     Dosage: FREQUENCY : ONCE;?
     Route: 041
     Dates: start: 20220117, end: 20220117

REACTIONS (8)
  - Infusion related reaction [None]
  - Dyspnoea [None]
  - Asthenia [None]
  - Flushing [None]
  - Chest pain [None]
  - Peripheral coldness [None]
  - Skin discolouration [None]
  - Somnolence [None]

NARRATIVE: CASE EVENT DATE: 20220117
